FAERS Safety Report 4380816-0 (Version None)
Quarter: 2004Q2

REPORT INFORMATION
  Report Type: 
  Country: None (occurrence: None)
  Receive Date: 20040616
  Receipt Date: 20040603
  Transmission Date: 20050107
  Serious: Yes (Hospitalization)
  Sender: FDA-Public Use
  Company Number: 2004037226

PATIENT
  Age: 38 Year
  Sex: Female

DRUGS (4)
  1. FELDENE [Suspect]
     Indication: ILL-DEFINED DISORDER
     Dosage: ORAL
     Route: 047
     Dates: start: 20031216, end: 20031223
  2. ACETYLSALICYLIC ACID SRT [Suspect]
     Indication: ILL-DEFINED DISORDER
     Dosage: ORAL
     Route: 048
     Dates: start: 20031216, end: 20031223
  3. PANTOPROZOLE (PANTOPRAZOLE) [Concomitant]
  4. TRAMADOL HCL [Concomitant]

REACTIONS (10)
  - ABDOMINAL PAIN UPPER [None]
  - ANGIONEUROTIC OEDEMA [None]
  - ASPARTATE AMINOTRANSFERASE INCREASED [None]
  - BACTERIURIA [None]
  - BLOOD IRON DECREASED [None]
  - C-REACTIVE PROTEIN INCREASED [None]
  - MICROCYTIC ANAEMIA [None]
  - NAUSEA [None]
  - PYREXIA [None]
  - TRANSAMINASES INCREASED [None]
